FAERS Safety Report 7982686-8 (Version None)
Quarter: 2011Q4

REPORT INFORMATION
  Report Type: 
  Country: None (occurrence: None)
  Receive Date: 20111215
  Receipt Date: 20111202
  Transmission Date: 20120403
  Serious: Yes (Other)
  Sender: FDA-Public Use
  Company Number: DE-ROCHE-1022040

PATIENT
  Age: 58 Year
  Sex: Male

DRUGS (5)
  1. TOCILIZUMAB [Suspect]
     Indication: POLYMYALGIA RHEUMATICA
  2. PREDNISOLONE [Concomitant]
  3. TOCILIZUMAB [Suspect]
  4. METHOTREXATE [Concomitant]
     Indication: POLYMYALGIA RHEUMATICA
  5. PREDNISOLONE [Concomitant]
     Indication: POLYMYALGIA RHEUMATICA

REACTIONS (1)
  - ATRIAL FIBRILLATION [None]
